FAERS Safety Report 6102161-5 (Version None)
Quarter: 2009Q1

REPORT INFORMATION
  Report Type: 
  Country: None (occurrence: None)
  Receive Date: 20090303
  Receipt Date: 20090303
  Transmission Date: 20090719
  Serious: No
  Sender: FDA-Public Use
  Company Number: None

PATIENT
  Age: 61 Year
  Sex: Female
  Weight: 127.9144 kg

DRUGS (1)
  1. CIPROFLOXACIN HYDROCHLORIDE [Suspect]
     Indication: URINARY TRACT INFECTION
     Dosage: 1 TWICE DAILY PO
     Route: 048
     Dates: start: 20080619, end: 20080620

REACTIONS (4)
  - ARTHROPATHY [None]
  - ILL-DEFINED DISORDER [None]
  - LIGAMENT RUPTURE [None]
  - MUSCULAR WEAKNESS [None]
